FAERS Safety Report 6843591-3 (Version None)
Quarter: 2010Q3

REPORT INFORMATION
  Report Type: 
  Country: None (occurrence: None)
  Receive Date: 20100715
  Receipt Date: 20100614
  Transmission Date: 20110219
  Serious: No
  Sender: FDA-Public Use
  Company Number: US-BAYER-201016952BCC

PATIENT

DRUGS (1)
  1. ALEVE (CAPLET) [Suspect]
     Indication: PAIN
     Route: 048

REACTIONS (1)
  - PAIN [None]
